FAERS Safety Report 5410348-X (Version None)
Quarter: 2007Q3

REPORT INFORMATION
  Report Type: 
  Country: None (occurrence: None)
  Receive Date: 20070808
  Receipt Date: 20070723
  Transmission Date: 20080115
  Serious: No
  Sender: FDA-Public Use
  Company Number: 2007BI014263

PATIENT
  Age: 25 Year
  Sex: Male

DRUGS (2)
  1. AVONEX [Suspect]
     Indication: MULTIPLE SCLEROSIS
     Dosage: 1; QW; IM, 1; QW; IM
     Route: 030
     Dates: start: 20070501, end: 20070701
  2. DIPYRONE TAB [Concomitant]

REACTIONS (8)
  - CONDITION AGGRAVATED [None]
  - GAIT DISTURBANCE [None]
  - HEADACHE [None]
  - INFLUENZA [None]
  - MALAISE [None]
  - MULTIPLE SCLEROSIS [None]
  - MUSCULOSKELETAL DISORDER [None]
  - MYALGIA [None]
